FAERS Safety Report 4660896-5 (Version None)
Quarter: 2005Q2

REPORT INFORMATION
  Report Type: 
  Country: None (occurrence: None)
  Receive Date: 20050427
  Receipt Date: 20040712
  Transmission Date: 20051028
  Serious: Yes (Hospitalization)
  Sender: FDA-Public Use
  Company Number: US-JNJFOC-20040703686

PATIENT
  Age: 60 Year
  Sex: Female

DRUGS (4)
  1. ULTRAM [Suspect]
     Indication: OSTEOARTHRITIS
     Dosage: 2 DOSE(S),  4 IN 1 DAY, ORAL
     Route: 048
  2. GLUCOPHAGE [Concomitant]
  3. GLYBURIDE [Concomitant]
  4. ACTOS [Concomitant]

REACTIONS (1)
  - JOINT INJURY [None]
